FAERS Safety Report 5168566-4 (Version None)
Quarter: 2006Q4

REPORT INFORMATION
  Report Type: 
  Country: None (occurrence: None)
  Receive Date: 20061208
  Receipt Date: 20061128
  Transmission Date: 20070319
  Serious: Yes (Life-Threatening)
  Sender: FDA-Public Use
  Company Number: CH-ABBOTT-06P-151-0352007-00

PATIENT
  Age: 64 Year
  Sex: Male

DRUGS (8)
  1. DEPAKENE [Suspect]
     Indication: AFFECTIVE DISORDER
     Route: 048
     Dates: start: 20060831, end: 20060904
  2. QUETIAPINE FUMARATE [Interacting]
     Indication: SCHIZOPHRENIA, PARANOID TYPE
     Dates: start: 20060901, end: 20060904
  3. QUETIAPINE FUMARATE [Interacting]
     Dates: start: 20060831, end: 20060831
  4. INDAPAMIDE [Concomitant]
     Indication: ESSENTIAL HYPERTENSION
     Route: 048
     Dates: end: 20060904
  5. PRINZIDE [Concomitant]
     Indication: ESSENTIAL HYPERTENSION
     Dosage: 12.5MG/20MG
     Route: 048
     Dates: end: 20060904
  6. AMLODIPINE BESYLATE [Concomitant]
     Indication: ESSENTIAL HYPERTENSION
     Route: 048
     Dates: end: 20060904
  7. CLONIDINE [Concomitant]
     Indication: DRUG USE FOR UNKNOWN INDICATION
     Route: 048
     Dates: end: 20060831
  8. RISPERDONE [Concomitant]
     Indication: DRUG USE FOR UNKNOWN INDICATION
     Dates: end: 20060829

REACTIONS (8)
  - DRUG INTERACTION [None]
  - HYPERTONIA [None]
  - HYPOTENSION [None]
  - METABOLIC ACIDOSIS [None]
  - NEUROLEPTIC MALIGNANT SYNDROME [None]
  - OXYGEN SATURATION DECREASED [None]
  - RENAL FAILURE ACUTE [None]
  - RHABDOMYOLYSIS [None]
